FAERS Safety Report 19482454 (Version 2)
Quarter: 2021Q3

REPORT INFORMATION
  Report Type: Report from Study
  Country: US (occurrence: US)
  Receive Date: 20210701
  Receipt Date: 20210810
  Transmission Date: 20211014
  Serious: Yes (Other)
  Sender: FDA-Public Use
  Company Number: US-GW PHARMA-202105USGW02669

PATIENT

DRUGS (2)
  1. EPIDIOLEX [Suspect]
     Active Substance: CANNABIDIOL
     Indication: PRODUCT USED FOR UNKNOWN INDICATION
     Dosage: TAKING ONE DOSE IN THE MORNING
     Route: 048
  2. EPIDIOLEX [Suspect]
     Active Substance: CANNABIDIOL
     Dosage: 500 MILLIGRAM, QD (PRESCRIBED 320 MILLIGRAM BID)
     Route: 048

REACTIONS (5)
  - Vertigo [Unknown]
  - Sleep disorder [Unknown]
  - Sleep study [Unknown]
  - Incorrect dose administered [Unknown]
  - Intentional product misuse [Unknown]
